FAERS Safety Report 8791228 (Version 1)
Quarter: 2012Q4

REPORT INFORMATION
  Report Type: Spontaneous
  Country: US (occurrence: None)
  Receive Date: 20120913
  Receipt Date: 20120913
  Transmission Date: 20130627
  Serious: Yes (Life-Threatening, Hospitalization)
  Sender: FDA-Public Use
  Company Number: None

PATIENT
  Age: 68 Year
  Sex: Male
  Weight: 106.6 kg

DRUGS (1)
  1. FINASTERIDE [Suspect]
     Indication: BENIGN PROSTATIC HYPERTROPHY
     Dosage: 5 Mg  1x/day  Oral
4/19 -} 4/21
     Route: 048

REACTIONS (3)
  - Rectal haemorrhage [None]
  - Swelling face [None]
  - Pharyngeal oedema [None]
